FAERS Safety Report 10641682 (Version 2)
Quarter: 2015Q1

REPORT INFORMATION
  Report Type: Spontaneous
  Country: US (occurrence: US)
  Receive Date: 20141209
  Receipt Date: 20150219
  Transmission Date: 20150720
  Serious: Yes (Hospitalization, Other)
  Sender: FDA-Public Use
  Company Number: US-INCYTE CORPORATION-2014IN003698

PATIENT
  Age: 80 Year
  Sex: Female
  Weight: 78 kg

DRUGS (7)
  1. VITAMIN C [Concomitant]
     Active Substance: ASCORBIC ACID
  2. SYNTHROID [Concomitant]
     Active Substance: LEVOTHYROXINE SODIUM
  3. JAKAFI [Suspect]
     Active Substance: RUXOLITINIB
     Indication: MYELOFIBROSIS
     Dosage: 10 MG, BID
     Route: 048
     Dates: start: 2012
  4. JAKAFI [Suspect]
     Active Substance: RUXOLITINIB
     Dosage: 5 MG, BID
     Route: 048
     Dates: start: 201307
  5. ASA [Suspect]
     Active Substance: ASPIRIN
     Dosage: QD
  6. CARDIA [Concomitant]
     Active Substance: AJMALINE
  7. NASONEX [Concomitant]
     Active Substance: MOMETASONE FUROATE

REACTIONS (11)
  - Constipation [Unknown]
  - Nausea [Unknown]
  - Herpes zoster [Unknown]
  - Dizziness [Unknown]
  - Weight increased [Unknown]
  - Depression [Unknown]
  - Transient ischaemic attack [Unknown]
  - Small intestine ulcer [Recovering/Resolving]
  - Diarrhoea [Unknown]
  - Gastrointestinal haemorrhage [Recovered/Resolved]
  - Vomiting [Unknown]

NARRATIVE: CASE EVENT DATE: 2012
